FAERS Safety Report 5149399-1 (Version None)
Quarter: 2006Q4

REPORT INFORMATION
  Report Type: 
  Country: None (occurrence: None)
  Receive Date: 20061113
  Receipt Date: 20051221
  Transmission Date: 20070319
  Serious: No
  Sender: FDA-Public Use
  Company Number: US-GLAXOSMITHKLINE-A0586621A

PATIENT
  Age: 48 Year
  Sex: Male

DRUGS (4)
  1. COREG [Suspect]
     Indication: HYPERTENSION
     Dosage: 12.5MG PER DAY
     Route: 048
     Dates: start: 20051201
  2. DEMADEX [Concomitant]
  3. GLUCOTROL [Concomitant]
  4. GLUCOPHAGE [Concomitant]

REACTIONS (1)
  - GOUT [None]
